FAERS Safety Report 5738380-7 (Version None)
Quarter: 2008Q2

REPORT INFORMATION
  Report Type: 
  Country: None (occurrence: None)
  Receive Date: 20080513
  Receipt Date: 20080506
  Transmission Date: 20081010
  Serious: Yes (Hospitalization)
  Sender: FDA-Public Use
  Company Number: 2008010102

PATIENT
  Age: 6 Year
  Sex: Male
  Weight: 20.9 kg

DRUGS (3)
  1. ZYRTEC [Suspect]
     Indication: HYPERSENSITIVITY
     Dosage: 7.5 MG - 10 MG, ONCE A DAY (1 IN 1 D),ORAL
     Route: 048
     Dates: start: 20070801, end: 20080405
  2. FLONASE [Concomitant]
  3. FLOVENT [Concomitant]

REACTIONS (2)
  - CONVULSION [None]
  - FRONTAL LOBE EPILEPSY [None]
